FAERS Safety Report 5076560-7 (Version None)
Quarter: 2006Q3

REPORT INFORMATION
  Report Type: 
  Country: None (occurrence: None)
  Receive Date: 20060810
  Receipt Date: 20060731
  Transmission Date: 20061208
  Serious: Yes (Hospitalization)
  Sender: FDA-Public Use
  Company Number: US-AMGEN-US188433

PATIENT
  Sex: Male

DRUGS (16)
  1. NEUPOGEN [Suspect]
     Indication: NEUTROPENIA
     Route: 065
  2. PEG-INTRON [Suspect]
     Indication: HEPATITIS C
     Route: 058
     Dates: start: 20060215, end: 20060329
  3. RIBAVIRIN [Suspect]
     Indication: HEPATITIS C
     Route: 048
     Dates: start: 20060215, end: 20060329
  4. ABILIFY [Concomitant]
     Route: 048
  5. AMITRIPTYLINE HYDROCHLORIDE [Concomitant]
     Route: 048
  6. BENZONATATE [Concomitant]
     Route: 048
  7. DOCUSATE SODIUM [Concomitant]
     Route: 048
  8. EFFEXOR [Concomitant]
     Route: 048
  9. LAMICTAL [Concomitant]
     Route: 048
  10. LORATADINE [Concomitant]
     Route: 048
  11. OMEPRAZOLE [Concomitant]
     Route: 048
  12. TETRACYCLINE [Concomitant]
     Route: 048
  13. TRETINOIN [Concomitant]
     Route: 061
  14. BENZOYL PEROXIDE [Concomitant]
     Route: 061
  15. WELLBUTRIN [Concomitant]
     Route: 048
  16. LUNESTA [Concomitant]
     Route: 048

REACTIONS (6)
  - CONVULSION [None]
  - DIZZINESS [None]
  - HAEMOPTYSIS [None]
  - HEADACHE [None]
  - LOSS OF CONSCIOUSNESS [None]
  - OESOPHAGEAL RUPTURE [None]
